FAERS Safety Report 7424288-8 (Version None)
Quarter: 2011Q2

REPORT INFORMATION
  Report Type: 
  Country: None (occurrence: None)
  Receive Date: 20110419
  Receipt Date: 20110413
  Transmission Date: 20111010
  Serious: Yes (Death)
  Sender: FDA-Public Use
  Company Number: GR-PFIZER INC-2011008376

PATIENT
  Age: 79 Year
  Sex: Female
  Weight: 69 kg

DRUGS (4)
  1. MEFOXIL [Suspect]
     Dosage: 1 G, 3X/DAY
     Route: 042
     Dates: start: 20090324, end: 20090326
  2. TYGACIL [Suspect]
     Dosage: 50 MG, 2X/DAY
     Route: 042
     Dates: start: 20090314, end: 20090322
  3. TYGACIL [Suspect]
     Indication: PERITONITIS
     Dosage: 100 MG, 1X/DAY
     Route: 042
     Dates: start: 20090313, end: 20090313
  4. MEFOXIL [Suspect]
     Indication: PERITONITIS
     Dosage: 2 G, 3X/DAY
     Route: 042
     Dates: start: 20090313, end: 20090323

REACTIONS (1)
  - CARDIO-RESPIRATORY ARREST [None]
